FAERS Safety Report 20374374 (Version 1)
Quarter: 2022Q1

REPORT INFORMATION
  Report Type: Other
  Country: US (occurrence: None)
  Receive Date: 20220125
  Receipt Date: 20220125
  Transmission Date: 20220423
  Serious: Yes (Death, Other)
  Sender: FDA-Public Use
  Company Number: US-ROCHE-2767490

PATIENT
  Sex: Male

DRUGS (1)
  1. OCREVUS [Suspect]
     Active Substance: OCRELIZUMAB
     Indication: Relapsing multiple sclerosis
     Dosage: 600 G EVERY 6 MONTHS
     Route: 065
     Dates: start: 20180212

REACTIONS (4)
  - Blindness [Unknown]
  - Vision blurred [Unknown]
  - Bladder cancer [Unknown]
  - COVID-19 pneumonia [Fatal]
